FAERS Safety Report 7626498 (Version 3)
Quarter: 2012Q4

REPORT INFORMATION
  Report Type: 
  Country: US (occurrence: US)
  Receive Date: 20101013
  Receipt Date: 20121214
  Transmission Date: 20130627
  Serious: Yes (Hospitalization)
  Sender: FDA-Public Use
  Company Number: US-ASTRAZENECA-2009SE13144

PATIENT
  Age: 66 Year
  Sex: Female

DRUGS (3)
  1. SYMBICORT PMDI [Suspect]
     Dosage: FREQUENCY UNKNOWN
     Route: 055
  2. NEXIUM [Suspect]
     Route: 048
  3. ANTIBIOTIC [Suspect]
     Route: 065

REACTIONS (3)
  - Adverse event [Unknown]
  - Dysphonia [Unknown]
  - Dry mouth [Unknown]
